FAERS Safety Report 7259211-2 (Version None)
Quarter: 2011Q1

REPORT INFORMATION
  Report Type: 
  Country: None (occurrence: None)
  Receive Date: 20110129
  Receipt Date: 20100715
  Transmission Date: 20110831
  Serious: No
  Sender: FDA-Public Use
  Company Number: US-ABBOTT-10P-163-0658440-00

PATIENT
  Sex: Female
  Weight: 68.1 kg

DRUGS (15)
  1. REMIRAN [Concomitant]
     Indication: ANXIETY
  2. PLAQUENIL [Concomitant]
     Indication: ARTHRITIS
  3. HUMIRA [Suspect]
     Indication: CROHN'S DISEASE
     Dates: start: 20080101, end: 20090101
  4. REMIRAN [Concomitant]
     Indication: DEPRESSION
  5. HUMIRA [Suspect]
     Indication: ARTHRITIS
     Dates: start: 20100601
  6. DEPO-PROVERA [Concomitant]
     Indication: CONTRACEPTION
  7. SYNTHROID [Concomitant]
     Indication: AUTOIMMUNE THYROIDITIS
  8. DEPO-PROVERA [Concomitant]
     Indication: ENDOMETRIOSIS
  9. TRAMADOL HCL [Concomitant]
     Indication: PAIN
  10. MULTIPLE VITAMINS [Concomitant]
     Indication: VITAMIN SUPPLEMENTATION
  11. CALCIUM [Concomitant]
     Indication: MINERAL SUPPLEMENTATION
  12. VITAMIN D [Concomitant]
     Indication: VITAMIN SUPPLEMENTATION
  13. LIBRAX [Concomitant]
     Indication: CROHN'S DISEASE
  14. PROTONIX [Concomitant]
     Indication: GASTROOESOPHAGEAL REFLUX DISEASE
  15. PREDNISONE [Concomitant]
     Indication: ARTHRITIS

REACTIONS (2)
  - ARTHRITIS [None]
  - DRUG INEFFECTIVE [None]
